FAERS Safety Report 24122361 (Version 1)
Quarter: 2024Q3

REPORT INFORMATION
  Report Type: Report from Study
  Country: FR (occurrence: FR)
  Receive Date: 20240723
  Receipt Date: 20240723
  Transmission Date: 20241017
  Serious: Yes (Hospitalization, Other)
  Sender: GLAXOSMITHKLINE
  Company Number: FR-GLAXOSMITHKLINE-FR2022GSK057859

PATIENT

DRUGS (3)
  1. BELIMUMAB [Suspect]
     Active Substance: BELIMUMAB
     Indication: Systemic lupus erythematosus
     Dosage: 10 MCG/KG
     Dates: start: 20150703
  2. PREDNISONE [Concomitant]
     Active Substance: PREDNISONE
     Indication: Systemic lupus erythematosus
     Dosage: 7.5 MG, QD
     Route: 048
     Dates: start: 201101
  3. CHLOROQUINE [Concomitant]
     Active Substance: CHLOROQUINE
     Indication: Systemic lupus erythematosus
     Dosage: 100 MG, BID
     Route: 048
     Dates: start: 201206

REACTIONS (1)
  - Necrotising fasciitis [Recovered/Resolved]

NARRATIVE: CASE EVENT DATE: 20190306
